FAERS Safety Report 5115515-0 (Version None)
Quarter: 2006Q3

REPORT INFORMATION
  Report Type: 
  Country: None (occurrence: None)
  Receive Date: 20060927
  Receipt Date: 20060704
  Transmission Date: 20061208
  Serious: Yes (Hospitalization)
  Sender: FDA-Public Use
  Company Number: IT-BAYER-200612859GDS

PATIENT
  Age: 75 Year
  Sex: Male

DRUGS (4)
  1. AVELOX [Suspect]
     Indication: CELLULITIS
     Dosage: TOTAL DAILY DOSE: 400 MG  UNIT DOSE: 400 MG
     Route: 048
     Dates: start: 20060607, end: 20060615
  2. AUGMENTIN [Suspect]
     Indication: CELLULITIS
     Dosage: TOTAL DAILY DOSE: 3 G
     Route: 048
     Dates: start: 20060607, end: 20060615
  3. ZYLORIC [Suspect]
     Indication: DRUG USE FOR UNKNOWN INDICATION
     Dosage: TOTAL DAILY DOSE: 150 MG  UNIT DOSE: 300 MG
     Route: 048
     Dates: start: 20050101, end: 20060619
  4. TRIATEC [Concomitant]
     Indication: DRUG USE FOR UNKNOWN INDICATION
     Dosage: TOTAL DAILY DOSE: 5 MG  UNIT DOSE: 2.5 MG
     Route: 048
     Dates: start: 20050101

REACTIONS (6)
  - ALKALOSIS [None]
  - ATRIAL FIBRILLATION [None]
  - ERYTHEMA MULTIFORME [None]
  - RENAL FAILURE ACUTE [None]
  - SHOCK [None]
  - VENTRICULAR TACHYCARDIA [None]
